FAERS Safety Report 5209585-9 (Version None)
Quarter: 2007Q1

REPORT INFORMATION
  Report Type: 
  Country: None (occurrence: None)
  Receive Date: 20070116
  Receipt Date: 20070105
  Transmission Date: 20070707
  Serious: Yes (Hospitalization)
  Sender: FDA-Public Use
  Company Number: US-PFIZER INC-2007000620

PATIENT
  Sex: Female
  Weight: 70.3 kg

DRUGS (1)
  1. BEXTRA [Suspect]

REACTIONS (4)
  - ALOPECIA [None]
  - DYSPNOEA [None]
  - FEELING ABNORMAL [None]
  - STEVENS-JOHNSON SYNDROME [None]
